FAERS Safety Report 7945128-4 (Version None)
Quarter: 2011Q4

REPORT INFORMATION
  Report Type: 
  Country: None (occurrence: None)
  Receive Date: 20111129
  Receipt Date: 20111129
  Transmission Date: 20120403
  Serious: Yes (Other)
  Sender: FDA-Public Use
  Company Number: None

PATIENT
  Age: 38 Year
  Sex: Female
  Weight: 84.368 kg

DRUGS (1)
  1. AMLODIPINE BESYLATE [Suspect]
     Indication: HYPERTENSION
     Dosage: 1
     Route: 048
     Dates: start: 20110324, end: 20111023

REACTIONS (5)
  - WEIGHT INCREASED [None]
  - FATIGUE [None]
  - DEPRESSION [None]
  - RASH [None]
  - DYSPEPSIA [None]
